FAERS Safety Report 9205924 (Version 2)
Quarter: 2014Q1

REPORT INFORMATION
  Report Type: Spontaneous
  Country: US (occurrence: US)
  Receive Date: 20130403
  Receipt Date: 20140102
  Transmission Date: 20141002
  Serious: Yes (Other)
  Sender: FDA-Public Use
  Company Number: US-BAYER-2013-039469

PATIENT
  Age: 17 Year
  Sex: Female

DRUGS (11)
  1. YASMIN [Suspect]
  2. YAZ [Suspect]
  3. PHENERGAN [Concomitant]
     Dosage: 25 MG, UNK
  4. ABILIFY [Concomitant]
     Dosage: 20 MG, UNK
  5. ALBUTEROL [Concomitant]
  6. GLUCOPHAGE [Concomitant]
     Dosage: 1000 MG, UNK
  7. DICYCLOMINE [Concomitant]
     Dosage: 10 MG, UNK
  8. RANITIDINE [Concomitant]
     Dosage: 150 MG, UNK
  9. BENZTROPINE [Concomitant]
     Dosage: 0.5 MG, UNK
  10. OXCARBAZEPINE [Concomitant]
     Dosage: 300 MG, UNK
  11. PULMICORT [Concomitant]

REACTIONS (5)
  - Cholecystectomy [None]
  - Cholecystitis chronic [None]
  - Injury [None]
  - Pain [None]
  - Emotional distress [None]
